FAERS Safety Report 10716359 (Version 2)
Quarter: 2015Q1

REPORT INFORMATION
  Report Type: Spontaneous
  Country: US (occurrence: US)
  Receive Date: 20150116
  Receipt Date: 20150121
  Transmission Date: 20150721
  Serious: Yes (Other)
  Sender: FDA-Public Use
  Company Number: CHPA2015US000703

PATIENT
  Age: 58 Year
  Sex: Female

DRUGS (1)
  1. PREVACID [Suspect]
     Active Substance: LANSOPRAZOLE
     Indication: GASTROOESOPHAGEAL REFLUX DISEASE
     Dosage: 1-2 DF, PRN
     Route: 048
     Dates: start: 2009

REACTIONS (9)
  - Immunodeficiency [Not Recovered/Not Resolved]
  - Fibromyalgia [Unknown]
  - Systemic lupus erythematosus [Unknown]
  - Gastritis [Unknown]
  - Nausea [Unknown]
  - Off label use [Unknown]
  - Arthritis [Unknown]
  - Haemorrhage [Unknown]
  - Weight decreased [Unknown]

NARRATIVE: CASE EVENT DATE: 2009
